FAERS Safety Report 8175548-7 (Version None)
Quarter: 2012Q1

REPORT INFORMATION
  Report Type: 
  Country: None (occurrence: None)
  Receive Date: 20120229
  Receipt Date: 20120217
  Transmission Date: 20120608
  Serious: Yes (Other)
  Sender: FDA-Public Use
  Company Number: DE-BRISTOL-MYERS SQUIBB COMPANY-16363392

PATIENT
  Age: 81 Year
  Sex: Female
  Weight: 44 kg

DRUGS (4)
  1. MARCUMAR [Interacting]
     Indication: MITRAL VALVE STENOSIS
     Dates: start: 19850101
  2. MARCUMAR [Interacting]
     Indication: ATRIAL FIBRILLATION
     Dates: start: 19850101
  3. DIGOXIN [Interacting]
     Dates: start: 19950101
  4. GLUCOPHAGE [Suspect]
     Indication: TYPE 2 DIABETES MELLITUS
     Route: 048
     Dates: start: 20050101, end: 20120118

REACTIONS (5)
  - CEREBRAL ARTERY EMBOLISM [None]
  - RENAL IMPAIRMENT [None]
  - DYSGEUSIA [None]
  - HEMIPARESIS [None]
  - DRUG INTERACTION [None]
